FAERS Safety Report 25033780 (Version 1)
Quarter: 2025Q1

REPORT INFORMATION
  Report Type: Report from Study
  Country: BR (occurrence: BR)
  Receive Date: 20250303
  Receipt Date: 20250303
  Transmission Date: 20250409
  Serious: Yes (Other)
  Sender: ABBVIE
  Company Number: BR-ABBVIE-6152197

PATIENT
  Age: 70 Year
  Sex: Male
  Weight: 125 kg

DRUGS (2)
  1. SKYRIZI [Suspect]
     Active Substance: RISANKIZUMAB-RZAA
     Indication: Psoriasis
     Route: 058
     Dates: start: 20231111, end: 20231111
  2. SKYRIZI [Suspect]
     Active Substance: RISANKIZUMAB-RZAA
     Route: 058
     Dates: start: 202312, end: 202312

REACTIONS (13)
  - Hypoacusis [Not Recovered/Not Resolved]
  - Dizziness [Unknown]
  - Bone erosion [Unknown]
  - Blood pressure decreased [Recovered/Resolved]
  - Nausea [Unknown]
  - Weight decreased [Unknown]
  - Renal neoplasm [Recovered/Resolved]
  - Dental prosthesis placement [Recovering/Resolving]
  - Memory impairment [Not Recovered/Not Resolved]
  - Injury associated with device [Recovering/Resolving]
  - Cold sweat [Unknown]
  - Pain [Unknown]
  - Nausea [Unknown]

NARRATIVE: CASE EVENT DATE: 20240101
